FAERS Safety Report 21164514 (Version 2)
Quarter: 2023Q2

REPORT INFORMATION
  Report Type: Other
  Country: US (occurrence: None)
  Receive Date: 20220803
  Receipt Date: 20230530
  Transmission Date: 20230721
  Serious: No
  Sender: FDA-Public Use
  Company Number: US-ROCHE-3147074

PATIENT
  Age: 45 Year
  Sex: Male
  Weight: 102.15 kg

DRUGS (2)
  1. OCREVUS [Suspect]
     Active Substance: OCRELIZUMAB
     Indication: Relapsing multiple sclerosis
     Dosage: ON DAY 1 AND DAY 15 THEN 600 MG EVERY 6 MONTHS
     Route: 042
     Dates: start: 20210727, end: 20230109
  2. TECFIDERA [Concomitant]
     Active Substance: DIMETHYL FUMARATE

REACTIONS (5)
  - JC polyomavirus test positive [Not Recovered/Not Resolved]
  - Malaise [Unknown]
  - Spinal deformity [Unknown]
  - Affect lability [Unknown]
  - Bladder disorder [Unknown]
